FAERS Safety Report 15008962 (Version 1)
Quarter: 2018Q2

REPORT INFORMATION
  Report Type: Spontaneous
  Country: PT (occurrence: PT)
  Receive Date: 20180614
  Receipt Date: 20180614
  Transmission Date: 20180711
  Serious: Yes (Other)
  Sender: FDA-Public Use
  Company Number: PT-EDENBRIDGE PHARMACEUTICALS, LLC-PT-2018EDE000166

PATIENT
  Age: 55 Year
  Sex: Male

DRUGS (15)
  1. MEROPENEM. [Concomitant]
     Active Substance: MEROPENEM
     Indication: STRONGYLOIDIASIS
     Dosage: UNK
  2. PREDNISOLONE. [Concomitant]
     Active Substance: PREDNISOLONE
     Indication: IMMUNOSUPPRESSION
     Dosage: 10 MG, UNK
  3. IVERMECTIN. [Suspect]
     Active Substance: IVERMECTIN
     Dosage: 200 ?G/KG, BID
     Route: 058
  4. IVERMECTIN. [Suspect]
     Active Substance: IVERMECTIN
     Dosage: 200 ?G/KG, BID
     Route: 048
  5. BASILIXIMAB [Concomitant]
     Active Substance: BASILIXIMAB
     Indication: IMMUNOSUPPRESSION
     Dosage: UNK
  6. BASILIXIMAB [Concomitant]
     Active Substance: BASILIXIMAB
     Dosage: UNK
     Route: 042
  7. IVERMECTIN. [Suspect]
     Active Substance: IVERMECTIN
     Indication: STRONGYLOIDIASIS
     Dosage: 200 ?G/KG, UNK
     Route: 048
  8. PREDNISOLONE. [Concomitant]
     Active Substance: PREDNISOLONE
     Dosage: 10 MG, UNK
     Route: 042
  9. CYCLOSPORIN [Concomitant]
     Active Substance: CYCLOSPORINE
     Dosage: UNK
     Route: 042
  10. MEROPENEM. [Concomitant]
     Active Substance: MEROPENEM
     Dosage: UNK
     Route: 042
  11. ALBENDAZOL [Concomitant]
     Active Substance: ALBENDAZOLE
     Dosage: 400 MG, TID
     Route: 042
  12. ALBENDAZOL [Concomitant]
     Active Substance: ALBENDAZOLE
     Indication: STRONGYLOIDIASIS
     Dosage: 400 MG, TID
  13. CYCLOSPORIN [Concomitant]
     Active Substance: CYCLOSPORINE
     Indication: IMMUNOSUPPRESSION
     Dosage: UNK
  14. PREDNISOLONE. [Concomitant]
     Active Substance: PREDNISOLONE
     Dosage: 5 MG ALTERNATED WITH 2.5 MG
  15. TACROLIMUS. [Concomitant]
     Active Substance: TACROLIMUS
     Indication: IMMUNOSUPPRESSION
     Dosage: UNK

REACTIONS (1)
  - Neurotoxicity [Unknown]
